FAERS Safety Report 4476913-1 (Version None)
Quarter: 2004Q4

REPORT INFORMATION
  Report Type: 
  Country: None (occurrence: None)
  Receive Date: 20041012
  Receipt Date: 20041001
  Transmission Date: 20050328
  Serious: Yes (Other)
  Sender: FDA-Public Use
  Company Number: 163-20785-04100112

PATIENT
  Sex: Female

DRUGS (1)
  1. THALOMID [Suspect]
     Indication: UTERINE CANCER
     Dosage: INITIAL DOSE 200MG, DOSE TO BE ESCALATED BY 200MG INCREMENTS Q2W TO A MAXIMUM OF 100MG/DAY, ORAL
     Route: 048

REACTIONS (21)
  - ASCITES [None]
  - ASTHENIA [None]
  - CONSTIPATION [None]
  - COUGH [None]
  - DYSPNOEA [None]
  - EMBOLISM [None]
  - FAECAL OCCULT BLOOD POSITIVE [None]
  - FATIGUE [None]
  - FLATULENCE [None]
  - HAEMOGLOBIN DECREASED [None]
  - HYPERMAGNESAEMIA [None]
  - HYPERNATRAEMIA [None]
  - HYPOALBUMINAEMIA [None]
  - HYPOMAGNESAEMIA [None]
  - LETHARGY [None]
  - LIVER DISORDER [None]
  - MALAISE [None]
  - OEDEMA [None]
  - RASH [None]
  - SKIN DESQUAMATION [None]
  - THROMBOSIS [None]
